FAERS Safety Report 25381511 (Version 2)
Quarter: 2025Q2

REPORT INFORMATION
  Report Type: Spontaneous
  Country: DE (occurrence: DE)
  Receive Date: 20250530
  Receipt Date: 20250601
  Transmission Date: 20250716
  Serious: Yes (Hospitalization)
  Sender: PRINSTON PHARMACEUTICAL
  Company Number: DE-PRINSTON PHARMACEUTICAL INC.-2025PRN00185

PATIENT
  Age: 46 Year
  Sex: Male

DRUGS (1)
  1. AMPHETAMINE [Suspect]
     Active Substance: AMPHETAMINE

REACTIONS (3)
  - Cerebellar infarction [Unknown]
  - Vasospasm [Unknown]
  - Drug abuse [Unknown]
